FAERS Safety Report 4656481-1 (Version None)
Quarter: 2005Q2

REPORT INFORMATION
  Report Type: 
  Country: None (occurrence: None)
  Receive Date: 20050504
  Receipt Date: 20050422
  Transmission Date: 20051028
  Serious: Yes (Death, Hospitalization)
  Sender: FDA-Public Use
  Company Number: 05P-167-0286694-00

PATIENT
  Age: 86 Year
  Sex: Male
  Weight: 71 kg

DRUGS (15)
  1. HUMIRA [Suspect]
     Indication: RHEUMATOID ARTHRITIS
     Dosage: 40 MG, 1 IN 2 WK
     Dates: start: 20040407, end: 20041213
  2. CODEINE PHOSPHATE [Concomitant]
  3. CALCIUM CARBONATE [Concomitant]
  4. FOLIC ACID [Concomitant]
  5. FUROSEMIDE [Concomitant]
  6. PREDNISOLONE [Concomitant]
  7. RISENDRONATE [Concomitant]
  8. DIGOXIN [Concomitant]
  9. DILTIAZEM [Concomitant]
  10. WARFARIN [Concomitant]
  11. METHOTREXATE SODIUM [Concomitant]
  12. AMOXICILLIN [Concomitant]
  13. PARACETAMOL [Concomitant]
  14. MELOXICAM [Concomitant]
  15. LANSOPRAZOLE [Concomitant]

REACTIONS (10)
  - CEREBROVASCULAR ACCIDENT [None]
  - CHOLELITHIASIS [None]
  - CONFUSIONAL STATE [None]
  - DISORIENTATION [None]
  - FALL [None]
  - GENERAL PHYSICAL HEALTH DETERIORATION [None]
  - HEMIPARESIS [None]
  - JAUNDICE CHOLESTATIC [None]
  - RESPIRATORY FAILURE [None]
  - SEPSIS [None]
